FAERS Safety Report 6058307-0 (Version None)
Quarter: 2009Q1

REPORT INFORMATION
  Report Type: 
  Country: None (occurrence: None)
  Receive Date: 20090123
  Receipt Date: 20090108
  Transmission Date: 20090719
  Serious: Yes (Hospitalization)
  Sender: FDA-Public Use
  Company Number: THYM-1000830

PATIENT
  Age: 53 Year
  Sex: Female

DRUGS (2)
  1. THYMOGLOBULIN [Suspect]
     Indication: MYELODYSPLASTIC SYNDROME
     Dosage: 3.75 MG/KG, QDX5, INTRAVENOUS
     Route: 042
     Dates: start: 20080827, end: 20080831
  2. IBUPROFEN TABLETS [Concomitant]

REACTIONS (17)
  - ACTIVATED PARTIAL THROMBOPLASTIN TIME SHORTENED [None]
  - ARTHRALGIA [None]
  - HAEMOGLOBIN DECREASED [None]
  - HEPATIC ENZYME INCREASED [None]
  - INTERNATIONAL NORMALISED RATIO INCREASED [None]
  - INTESTINAL PERFORATION [None]
  - JOINT EFFUSION [None]
  - JOINT SWELLING [None]
  - MOUTH ULCERATION [None]
  - NECK PAIN [None]
  - OEDEMA PERIPHERAL [None]
  - PLEURAL EFFUSION [None]
  - RECTAL HAEMORRHAGE [None]
  - RENAL FAILURE ACUTE [None]
  - SEPSIS [None]
  - VENOUS THROMBOSIS [None]
  - VITAMIN K DEFICIENCY [None]
